FAERS Safety Report 20608229 (Version 7)
Quarter: 2022Q3

REPORT INFORMATION
  Report Type: Report from Study
  Country: KR (occurrence: KR)
  Receive Date: 20220317
  Receipt Date: 20220823
  Transmission Date: 20221027
  Serious: Yes (Hospitalization)
  Sender: FDA-Public Use
  Company Number: KR-NOVARTISPH-NVSC2022KR027304

PATIENT
  Age: 78 Year
  Sex: Male

DRUGS (8)
  1. DABRAFENIB [Suspect]
     Active Substance: DABRAFENIB
     Indication: Thyroid cancer
     Dosage: UNK
     Route: 048
     Dates: start: 20220117, end: 20220203
  2. AMOSARTAN [Concomitant]
     Indication: Essential hypertension
     Dosage: UNK
     Route: 065
     Dates: start: 20150729
  3. CICIBON [Concomitant]
     Indication: Mineral supplementation
     Dosage: UNK
     Route: 065
     Dates: start: 20210823
  4. ONEALFA [Concomitant]
     Active Substance: ALFACALCIDOL
     Indication: Vitamin supplementation
     Dosage: UNK
     Route: 065
     Dates: start: 20211115
  5. ALMAGEL [Concomitant]
     Indication: Duodenal ulcer
     Dosage: UNK
     Route: 065
     Dates: start: 20220204, end: 20220214
  6. OMED [Concomitant]
     Indication: Abdominal pain upper
     Dosage: UNK
     Route: 065
     Dates: start: 20210823
  7. AMLODIPINE BESYLATE [Concomitant]
     Active Substance: AMLODIPINE BESYLATE
     Indication: Essential hypertension
     Dosage: UNK
     Route: 065
     Dates: start: 20211221
  8. LEVOTHYROXINE SODIUM [Concomitant]
     Active Substance: LEVOTHYROXINE SODIUM
     Indication: Product used for unknown indication
     Dosage: UNK
     Route: 065

REACTIONS (1)
  - Duodenal ulcer [Recovering/Resolving]

NARRATIVE: CASE EVENT DATE: 20220204
